FAERS Safety Report 10035528 (Version 1)
Quarter: 2014Q1

REPORT INFORMATION
  Report Type: Spontaneous
  Country: US (occurrence: US)
  Receive Date: 20140325
  Receipt Date: 20140325
  Transmission Date: 20141002
  Serious: No
  Sender: FDA-Public Use
  Company Number: US-PFIZER INC-2014083538

PATIENT
  Sex: Female

DRUGS (2)
  1. NEURONTIN [Suspect]
     Indication: HYPOAESTHESIA
     Dosage: UNK
     Dates: start: 2010
  2. NEURONTIN [Suspect]
     Indication: SENSORY LOSS

REACTIONS (1)
  - Drug ineffective [Unknown]
